FAERS Safety Report 22328160 (Version 2)
Quarter: 2023Q2

REPORT INFORMATION
  Report Type: Spontaneous
  Country: AU (occurrence: AU)
  Receive Date: 20230516
  Receipt Date: 20230608
  Transmission Date: 20230722
  Serious: Yes (Hospitalization, Other)
  Sender: FDA-Public Use
  Company Number: AU-009507513-2305AUS003628

PATIENT
  Age: 74 Year
  Sex: Male

DRUGS (1)
  1. BCG LIVE [Suspect]
     Active Substance: BACILLUS CALMETTE-GUERIN SUBSTRAIN TICE LIVE ANTIGEN
     Indication: Bladder cancer
     Dosage: UNK
     Route: 043

REACTIONS (3)
  - Osteomyelitis [Recovering/Resolving]
  - Extradural abscess [Recovering/Resolving]
  - Mycobacterial infection [Recovering/Resolving]
